FAERS Safety Report 12828254 (Version 2)
Quarter: 2016Q4

REPORT INFORMATION
  Report Type: Spontaneous
  Country: JP (occurrence: JP)
  Receive Date: 20161007
  Receipt Date: 20161227
  Transmission Date: 20170207
  Serious: Yes (Death)
  Sender: FDA-Public Use
  Company Number: JP-TEVA-698511ISR

PATIENT
  Age: 63 Year
  Sex: Male
  Weight: 74 kg

DRUGS (6)
  1. E-FEN BUCCAL(FENTANYL CITRATE) [Suspect]
     Active Substance: FENTANYL CITRATE
     Dosage: 50 MICROGRAM DAILY;
     Route: 002
     Dates: start: 20151109, end: 20151122
  2. E-FEN BUCCAL(FENTANYL CITRATE) [Suspect]
     Active Substance: FENTANYL CITRATE
     Indication: BREAKTHROUGH PAIN
     Dosage: 100 MICROGRAM DAILY; A RESCUE DOSE
     Route: 002
     Dates: start: 20151029, end: 20151029
  3. TAPENTA [Concomitant]
     Active Substance: TAPENTADOL HYDROCHLORIDE
     Indication: CANCER PAIN
     Dosage: 50 MILLIGRAM DAILY;
     Route: 048
     Dates: start: 20151029, end: 20151116
  4. OXIFAST [Concomitant]
     Active Substance: OXYCODONE
     Indication: CANCER PAIN
     Dosage: 40 MILLIGRAM DAILY;
     Route: 058
     Dates: start: 20151030, end: 20151110
  5. OXINORM [Concomitant]
     Active Substance: OXYCODONE HYDROCHLORIDE
     Indication: BREAKTHROUGH PAIN
     Route: 048
     Dates: start: 20151029, end: 20151116
  6. FENTOS [Concomitant]
     Active Substance: FENTANYL
     Indication: CANCER PAIN
     Dosage: 3 MILLIGRAM DAILY;
     Route: 062
     Dates: start: 20151116, end: 20151124

REACTIONS (1)
  - Gastric cancer [Fatal]

NARRATIVE: CASE EVENT DATE: 20151124
